FAERS Safety Report 13133404 (Version 1)
Quarter: 2017Q1

REPORT INFORMATION
  Report Type: Report from Study
  Country: US (occurrence: US)
  Receive Date: 20170120
  Receipt Date: 20170120
  Transmission Date: 20170428
  Serious: Yes (Hospitalization)
  Sender: FDA-Public Use
  Company Number: US-TAIHO ONCOLOGY INC-EU-2017-00074

PATIENT
  Age: 62 Year
  Sex: Male
  Weight: 62.2 kg

DRUGS (2)
  1. LONSURF [Suspect]
     Active Substance: TIPIRACIL HYDROCHLORIDE\TRIFLURIDINE
     Indication: COLON CANCER STAGE IV
     Dosage: DOSING REGIMEN UNKNOWN
     Route: 048
     Dates: start: 20161227, end: 20161231
  2. MORPHINE [Concomitant]
     Active Substance: MORPHINE
     Dosage: NI

REACTIONS (7)
  - Peripheral swelling [Unknown]
  - Protein total decreased [Unknown]
  - Blood sodium decreased [Unknown]
  - Bone cancer metastatic [Unknown]
  - Abasia [Unknown]
  - Hip fracture [Unknown]
  - Chromaturia [Unknown]

NARRATIVE: CASE EVENT DATE: 201701
